FAERS Safety Report 6261654-0 (Version None)
Quarter: 2009Q3

REPORT INFORMATION
  Report Type: 
  Country: None (occurrence: None)
  Receive Date: 20090707
  Receipt Date: 20090707
  Transmission Date: 20100115
  Serious: Yes (Hospitalization)
  Sender: FDA-Public Use
  Company Number: None

PATIENT
  Age: 39 Year
  Sex: Female
  Weight: 75.7 kg

DRUGS (3)
  1. WARFARIN SODIUM [Suspect]
     Indication: DEEP VEIN THROMBOSIS
     Dosage: 10 MG EVERY DAY PO
     Route: 048
     Dates: start: 20090429, end: 20090605
  2. WARFARIN SODIUM [Suspect]
     Indication: PROTEIN S DEFICIENCY
     Dosage: 10 MG EVERY DAY PO
     Route: 048
     Dates: start: 20090429, end: 20090605
  3. WARFARIN SODIUM [Suspect]
     Indication: PULMONARY EMBOLISM
     Dosage: 10 MG EVERY DAY PO
     Route: 048
     Dates: start: 20090429, end: 20090605

REACTIONS (7)
  - ASTHENIA [None]
  - DIZZINESS [None]
  - HAEMOGLOBIN DECREASED [None]
  - INTERNATIONAL NORMALISED RATIO INCREASED [None]
  - INTRA-UTERINE CONTRACEPTIVE DEVICE REMOVAL [None]
  - POST PROCEDURAL HAEMORRHAGE [None]
  - VAGINAL HAEMORRHAGE [None]
